FAERS Safety Report 7876839-7 (Version None)
Quarter: 2011Q4

REPORT INFORMATION
  Report Type: 
  Country: None (occurrence: None)
  Receive Date: 20111031
  Receipt Date: 20111024
  Transmission Date: 20120403
  Serious: Yes (Hospitalization)
  Sender: FDA-Public Use
  Company Number: PHEH2011US04303

PATIENT
  Sex: Male
  Weight: 75.5 kg

DRUGS (5)
  1. CASODEX [Concomitant]
  2. ZOMETA [Suspect]
     Indication: METASTASES TO BONE
     Dosage: 4 MG, QMO
     Route: 042
     Dates: start: 20110519, end: 20110816
  3. OXYCODONE HCL [Concomitant]
  4. CHEMOTHERAPEUTICS [Concomitant]
  5. LUPRON [Concomitant]

REACTIONS (2)
  - PANCREATITIS [None]
  - ABDOMINAL PAIN [None]
